FAERS Safety Report 6077945-2 (Version None)
Quarter: 2009Q1

REPORT INFORMATION
  Report Type: 
  Country: None (occurrence: None)
  Receive Date: 20090213
  Receipt Date: 20090211
  Transmission Date: 20090719
  Serious: Yes (Hospitalization)
  Sender: FDA-Public Use
  Company Number: US-KINGPHARMUSA00001-K200900133

PATIENT
  Age: 70 Year
  Sex: Male

DRUGS (9)
  1. ALTACE [Suspect]
     Dosage: 10 MG, QD
     Route: 048
  2. TAHOR [Suspect]
     Indication: HYPERCHOLESTEROLAEMIA
     Dosage: 80 MG, QD
     Route: 048
     Dates: start: 20081001, end: 20081209
  3. CARDENSIEL [Concomitant]
     Indication: HYPERTENSION
     Dosage: 2.5 MG, UNK
     Route: 048
     Dates: start: 20060101
  4. AMLOD [Concomitant]
     Indication: HYPERTENSION
     Dosage: UNK
     Route: 048
     Dates: start: 20060901
  5. NITRODERM [Concomitant]
     Indication: ISCHAEMIC CARDIOMYOPATHY
     Dosage: UNK
     Route: 062
     Dates: start: 20060901
  6. KARDEGIC                           /00002703/ [Concomitant]
     Indication: PROPHYLAXIS
     Dosage: 75 MG, UNK
     Route: 048
     Dates: start: 20051101
  7. SERESTA [Concomitant]
     Indication: ANXIETY
     Dosage: UNK
     Route: 048
  8. TOPALGIC                           /00599202/ [Concomitant]
     Indication: PAIN
     Dosage: UNK
     Route: 048
  9. NASONEX [Concomitant]
     Indication: RHINITIS
     Dosage: UNK
     Route: 045

REACTIONS (9)
  - ABDOMINAL PAIN UPPER [None]
  - CHEST PAIN [None]
  - CHOLESTASIS [None]
  - DIARRHOEA [None]
  - GASTROINTESTINAL DISORDER [None]
  - LIPASE INCREASED [None]
  - NAUSEA [None]
  - TRANSAMINASES INCREASED [None]
  - VOMITING [None]
